FAERS Safety Report 7606074-9 (Version None)
Quarter: 2011Q3

REPORT INFORMATION
  Report Type: 
  Country: None (occurrence: None)
  Receive Date: 20110705
  Receipt Date: 20110620
  Transmission Date: 20111222
  Serious: Yes (Life-Threatening, Hospitalization, Other)
  Sender: FDA-Public Use
  Company Number: 2011MA007785

PATIENT
  Age: 39 Year
  Sex: Female

DRUGS (3)
  1. ETHANOL [Concomitant]
  2. FEVERALL [Suspect]
     Indication: OVERDOSE
  3. ALPRAZOLAM [Concomitant]

REACTIONS (9)
  - ASPARTATE AMINOTRANSFERASE INCREASED [None]
  - UNRESPONSIVE TO STIMULI [None]
  - LIVER INJURY [None]
  - ALCOHOL USE [None]
  - COMA [None]
  - ALANINE AMINOTRANSFERASE INCREASED [None]
  - OVERDOSE [None]
  - BLOOD GLUCOSE INCREASED [None]
  - PROTHROMBIN TIME PROLONGED [None]
